FAERS Safety Report 25306602 (Version 2)
Quarter: 2025Q2

REPORT INFORMATION
  Report Type: Spontaneous
  Country: DE (occurrence: DE)
  Receive Date: 20250513
  Receipt Date: 20250522
  Transmission Date: 20250716
  Serious: Yes (Other)
  Sender: TEVA
  Company Number: DE-TEVA-VS-3329546

PATIENT
  Age: 64 Year
  Sex: Female

DRUGS (8)
  1. AZITHROMYCIN [Suspect]
     Active Substance: AZITHROMYCIN
     Indication: Mycobacterium chelonae infection
     Route: 048
     Dates: start: 202401
  2. IMIPENEM [Concomitant]
     Active Substance: IMIPENEM
     Indication: Device related infection
     Route: 042
     Dates: start: 202401
  3. TOBRAMYCIN [Concomitant]
     Active Substance: TOBRAMYCIN
     Indication: Mycobacterium chelonae infection
     Route: 065
  4. AMIKACIN [Concomitant]
     Active Substance: AMIKACIN
     Indication: Device related infection
     Route: 042
     Dates: start: 202401
  5. PREDNISOLONE [Concomitant]
     Active Substance: PREDNISOLONE
     Indication: Drug therapy
     Route: 065
  6. METHOTREXATE [Concomitant]
     Active Substance: METHOTREXATE
     Indication: Drug therapy
     Route: 065
  7. LINEZOLID [Concomitant]
     Active Substance: LINEZOLID
     Indication: Mycobacterium chelonae infection
     Route: 048
     Dates: start: 202401
  8. CLOFAZIMINE [Concomitant]
     Active Substance: CLOFAZIMINE
     Indication: Mycobacterium chelonae infection
     Route: 048
     Dates: start: 202401

REACTIONS (1)
  - Electrocardiogram QT prolonged [Recovered/Resolved]

NARRATIVE: CASE EVENT DATE: 20240101
